FAERS Safety Report 16873904 (Version 1)
Quarter: 2019Q4

REPORT INFORMATION
  Report Type: Spontaneous
  Country: US (occurrence: US)
  Receive Date: 20191001
  Receipt Date: 20191001
  Transmission Date: 20200122
  Serious: Yes (Hospitalization)
  Sender: FDA-Public Use
  Company Number: US-SCIEGEN PHARMACEUTICALS INC-2019SCILIT00276

PATIENT

DRUGS (2)
  1. RANOLAZINE EXTENDED-RELEASE TABLETS [Suspect]
     Active Substance: RANOLAZINE
  2. PREZCOBIX [Interacting]
     Active Substance: COBICISTAT\DARUNAVIR ETHANOLATE

REACTIONS (6)
  - Vomiting [Unknown]
  - Atrioventricular block first degree [Unknown]
  - Decreased appetite [Recovering/Resolving]
  - Weight decreased [Recovering/Resolving]
  - Drug interaction [Unknown]
  - Dyspepsia [Unknown]
